FAERS Safety Report 5889761-2 (Version None)
Quarter: 2008Q3

REPORT INFORMATION
  Report Type: 
  Country: None (occurrence: None)
  Receive Date: 20080919
  Receipt Date: 20080916
  Transmission Date: 20090109
  Serious: Yes (Hospitalization)
  Sender: FDA-Public Use
  Company Number: AU-MERCK-0605AUS00148

PATIENT
  Age: 66 Year
  Sex: Male

DRUGS (10)
  1. ZETIA [Suspect]
     Indication: DIABETES MELLITUS
     Route: 048
     Dates: start: 20051107, end: 20051223
  2. METFORMIN HYDROCHLORIDE [Concomitant]
     Indication: DIABETES MELLITUS
     Route: 048
  3. GLIMEPIRIDE [Concomitant]
     Indication: DIABETES MELLITUS
     Route: 048
  4. PRAVASTATIN SODIUM [Suspect]
     Indication: METABOLIC DISORDER
     Route: 048
     Dates: end: 20051223
  5. FENOFIBRATE [Suspect]
     Indication: METABOLIC DISORDER
     Route: 048
     Dates: start: 20051107, end: 20051223
  6. ROSIGLITAZONE MALEATE [Suspect]
     Indication: DIABETES MELLITUS
     Route: 048
     Dates: start: 20051210
  7. TELMISARTAN [Suspect]
     Indication: DIABETES MELLITUS
     Route: 048
  8. PIOGLITAZONE HYDROCHLORIDE [Suspect]
     Route: 048
     Dates: start: 20051206, end: 20060115
  9. RAMIPRIL [Concomitant]
     Route: 065
  10. ETHIODIZED OIL [Concomitant]
     Route: 065

REACTIONS (9)
  - ANAEMIA [None]
  - BLOOD BILIRUBIN INCREASED [None]
  - BLOOD CHOLESTEROL INCREASED [None]
  - BLOOD LACTATE DEHYDROGENASE INCREASED [None]
  - DECREASED APPETITE [None]
  - HEPATIC FAILURE [None]
  - LIVER FUNCTION TEST ABNORMAL [None]
  - NAUSEA [None]
  - WEIGHT DECREASED [None]
